FAERS Safety Report 8602021-1 (Version None)
Quarter: 2012Q3

REPORT INFORMATION
  Report Type: 
  Country: None (occurrence: None)
  Receive Date: 20120817
  Receipt Date: 20120810
  Transmission Date: 20120928
  Serious: Yes (Other)
  Sender: FDA-Public Use
  Company Number: JP-PFIZER INC-2012187095

PATIENT
  Age: 12 Year
  Sex: Female
  Weight: 39 kg

DRUGS (4)
  1. ZITHROMAX [Suspect]
     Indication: MYCOPLASMA INFECTION
     Dosage: 500 MG, 1X/DAY
     Route: 048
     Dates: start: 20120724, end: 20120724
  2. ACETAMINOPHEN [Suspect]
     Indication: MYCOPLASMA INFECTION
  3. ZITHROMAX [Suspect]
     Indication: RESPIRATORY TRACT INFLAMMATION
  4. ACETAMINOPHEN [Suspect]
     Indication: UPPER RESPIRATORY TRACT INFLAMMATION
     Dosage: 300 MG/DAY, AS NEEDED
     Route: 048
     Dates: start: 20120724, end: 20120724

REACTIONS (2)
  - LOSS OF CONSCIOUSNESS [None]
  - NAUSEA [None]
